FAERS Safety Report 5284782-5 (Version None)
Quarter: 2007Q1

REPORT INFORMATION
  Report Type: 
  Country: None (occurrence: None)
  Receive Date: 20061229
  Receipt Date: 20060630
  Transmission Date: 20070707
  Serious: Yes (Other)
  Sender: FDA-Public Use
  Company Number: PHEH2006US08519

PATIENT
  Sex: Female

DRUGS (1)
  1. CLOZARIL [Suspect]
     Indication: PARANOIA
     Dosage: 700 MG, QD, ORAL
     Route: 048
     Dates: start: 19980101

REACTIONS (3)
  - CONSTIPATION [None]
  - CONVULSION [None]
  - WEIGHT INCREASED [None]
